FAERS Safety Report 8799875 (Version 2)
Quarter: 2013Q4

REPORT INFORMATION
  Report Type: Spontaneous
  Country: US (occurrence: US)
  Receive Date: 20120919
  Receipt Date: 20131101
  Transmission Date: 20140711
  Serious: No
  Sender: FDA-Public Use
  Company Number: US-009507513-1208USA008285

PATIENT
  Sex: Female

DRUGS (1)
  1. HYZAAR [Suspect]
     Indication: HYPERTENSION
     Dosage: 100MG/25MG, QD
     Route: 048
     Dates: start: 201101

REACTIONS (3)
  - Bone pain [Unknown]
  - Local swelling [Unknown]
  - Dizziness [Unknown]
